FAERS Safety Report 9029263 (Version 1)
Quarter: 2013Q1

REPORT INFORMATION
  Report Type: Spontaneous
  Country: BR (occurrence: BR)
  Receive Date: 20130125
  Receipt Date: 20130125
  Transmission Date: 20140127
  Serious: Yes (Other)
  Sender: FDA-Public Use
  Company Number: BR-AMGEN-BRASP2012039453

PATIENT
  Age: 47 Year
  Sex: Female
  Weight: 72 kg

DRUGS (6)
  1. ENBREL [Suspect]
     Indication: ANKYLOSING SPONDYLITIS
     Dosage: 50 MG, ONCE WEEKLY
     Route: 058
     Dates: start: 200803, end: 201103
  2. FOLIC ACID [Concomitant]
     Dosage: UNK
  3. HYDROCHLOROTHIAZIDE [Concomitant]
     Indication: BLOOD PRESSURE INCREASED
     Dosage: UNK
  4. HYDROCHLOROTHIAZIDE [Concomitant]
     Dosage: 50 MG, UNK
  5. METHOTREXATE [Concomitant]
     Dosage: UNK
  6. GLIFAGE [Concomitant]
     Indication: DIABETES MELLITUS
     Dosage: 500 MG, UNK

REACTIONS (2)
  - Salivary gland neoplasm [Unknown]
  - Injection site mass [Unknown]
